FAERS Safety Report 10491502 (Version 1)
Quarter: 2014Q4

REPORT INFORMATION
  Report Type: Spontaneous
  Country: US (occurrence: US)
  Receive Date: 20141002
  Receipt Date: 20141002
  Transmission Date: 20150528
  Serious: No
  Sender: FDA-Public Use
  Company Number: US-GLAXOSMITHKLINE-A1054292A

PATIENT
  Sex: Female

DRUGS (4)
  1. VENTOLIN [Suspect]
     Active Substance: ALBUTEROL SULFATE
     Indication: ASTHMA
  2. PREDNISONE. [Concomitant]
     Active Substance: PREDNISONE
  3. FLONASE [Concomitant]
     Active Substance: FLUTICASONE PROPIONATE
  4. ADVAIR HFA [Suspect]
     Active Substance: FLUTICASONE PROPIONATE\SALMETEROL XINAFOATE
     Indication: CHRONIC OBSTRUCTIVE PULMONARY DISEASE
     Dosage: 1PUFF TWICE PER DAY
     Route: 055
     Dates: start: 201310

REACTIONS (10)
  - Oropharyngeal pain [Unknown]
  - Hypoaesthesia [Unknown]
  - Cough [Unknown]
  - Paraesthesia [Unknown]
  - Nasopharyngitis [Unknown]
  - Dyspnoea [Not Recovered/Not Resolved]
  - Wheezing [Unknown]
  - Pain in extremity [Unknown]
  - Burning sensation [Unknown]
  - Bronchitis [Unknown]
